FAERS Safety Report 8801787 (Version 2)
Quarter: 2012Q4

REPORT INFORMATION
  Report Type: 
  Country: US (occurrence: US)
  Receive Date: 20120921
  Receipt Date: 20121029
  Transmission Date: 20130627
  Serious: No
  Sender: FDA-Public Use
  Company Number: US-PFIZER INC-2012233771

PATIENT
  Age: 71 Year
  Sex: Female
  Weight: 90.7 kg

DRUGS (4)
  1. CELEBREX [Suspect]
     Indication: ARTHRITIS
     Dosage: either 100mg or 200mg, daily
     Dates: end: 2011
  2. CORTISONE [Suspect]
     Indication: PAIN IN HIP
     Dosage: UNK
     Dates: start: 2012
  3. CORTISONE [Suspect]
     Indication: SLEEP DISORDER
  4. COZAAR [Concomitant]
     Indication: BLOOD PRESSURE HIGH
     Dosage: UNK, daily

REACTIONS (5)
  - Fall [Unknown]
  - Renal disorder [Unknown]
  - Arthralgia [Unknown]
  - Sleep disorder [Unknown]
  - Drug ineffective [Unknown]
